FAERS Safety Report 4562590-8 (Version None)
Quarter: 2005Q1

REPORT INFORMATION
  Report Type: 
  Country: None (occurrence: None)
  Receive Date: 20050127
  Receipt Date: 20050124
  Transmission Date: 20050727
  Serious: Yes (Life-Threatening)
  Sender: FDA-Public Use
  Company Number: DE-MERCK-0501DEU00229

PATIENT

DRUGS (1)
  1. VIOXX [Suspect]
     Route: 048
     Dates: start: 20011101, end: 20040301

REACTIONS (1)
  - MYOCARDIAL INFARCTION [None]
